FAERS Safety Report 6233249-6 (Version None)
Quarter: 2009Q2

REPORT INFORMATION
  Report Type: 
  Country: None (occurrence: None)
  Receive Date: 20090617
  Receipt Date: 20090609
  Transmission Date: 20091009
  Serious: Yes (Hospitalization)
  Sender: FDA-Public Use
  Company Number: US-WATSON-2009-04243

PATIENT
  Age: 14 Year

DRUGS (1)
  1. MORPHINE SULFATE INJ [Suspect]
     Indication: INTENTIONAL DRUG MISUSE
     Dosage: UNK
     Route: 048

REACTIONS (1)
  - LEUKOENCEPHALOPATHY [None]
